FAERS Safety Report 9997840 (Version 1)
Quarter: 2014Q1

REPORT INFORMATION
  Report Type: Spontaneous
  Country: DK (occurrence: DK)
  Receive Date: 20140311
  Receipt Date: 20140311
  Transmission Date: 20141002
  Serious: Yes (Other)
  Sender: FDA-Public Use
  Company Number: DK-WATSON-2014-04054

PATIENT
  Age: 25 Year
  Sex: Female
  Weight: 49 kg

DRUGS (1)
  1. TETRACYCLINE ACTAVIS (UNKNOWN) [Suspect]
     Indication: ACNE
     Dosage: 250 MG, DAILY
     Route: 065
     Dates: start: 20131205, end: 20131223

REACTIONS (2)
  - Oesophageal stenosis [Recovering/Resolving]
  - Pain [Unknown]
